FAERS Safety Report 7591790-8 (Version None)
Quarter: 2011Q3

REPORT INFORMATION
  Report Type: 
  Country: None (occurrence: None)
  Receive Date: 20110701
  Receipt Date: 20110701
  Transmission Date: 20111222
  Serious: Yes (Life-Threatening, Hospitalization)
  Sender: FDA-Public Use
  Company Number: None

PATIENT
  Age: 64 Year
  Sex: Female
  Weight: 85.7298 kg

DRUGS (1)
  1. NEULASTA [Suspect]
     Indication: WHITE BLOOD CELL COUNT INCREASED
     Dosage: 1 SHOT 24 HR AFTER CHEMO AFTER EA CHEMO
     Dates: start: 20110622, end: 20110622

REACTIONS (16)
  - CHEST PAIN [None]
  - HEADACHE [None]
  - PAIN IN EXTREMITY [None]
  - CARDIAC FLUTTER [None]
  - NECK PAIN [None]
  - DYSPNOEA [None]
  - PAIN IN JAW [None]
  - MUSCULOSKELETAL CHEST PAIN [None]
  - ABASIA [None]
  - CHEST DISCOMFORT [None]
  - BRONCHITIS [None]
  - DEAFNESS TRANSITORY [None]
  - TOOTHACHE [None]
  - ARTHRALGIA [None]
  - LYMPHADENOPATHY [None]
  - HYPERHIDROSIS [None]
